FAERS Safety Report 6033946-1 (Version None)
Quarter: 2009Q1

REPORT INFORMATION
  Report Type: 
  Country: None (occurrence: None)
  Receive Date: 20090112
  Receipt Date: 20090106
  Transmission Date: 20090719
  Serious: Yes (Death, Other)
  Sender: FDA-Public Use
  Company Number: PHEH2006US08858

PATIENT
  Sex: Male

DRUGS (13)
  1. ZOMETA [Suspect]
     Indication: PROSTATE CANCER METASTATIC
     Dosage: UNK
     Dates: end: 20050701
  2. COUMADIN [Concomitant]
  3. HORMONES AND RELATED AGENTS [Concomitant]
  4. ALBUTEROL SULFATE [Concomitant]
     Indication: ASTHMA
     Dosage: UNK
  5. DARVOCET-N 100 [Concomitant]
     Dosage: 100 MG Q6 HRS PRN
  6. ERYTHROMYCIN [Concomitant]
     Dosage: UNK
     Dates: start: 20050101, end: 20050101
  7. PREDNISONE TAB [Concomitant]
     Indication: CHRONIC OBSTRUCTIVE PULMONARY DISEASE
  8. ATROVENT [Concomitant]
     Indication: ASTHMA
     Dosage: UNK
  9. HYDROCHLOROTHIAZIDE [Concomitant]
     Dosage: 25 MG, QD
  10. INFLUENZA VIRUS VACCINE [Concomitant]
     Dosage: UNK
     Dates: start: 20030101
  11. OXYGEN THERAPY [Concomitant]
     Dosage: 2 L, UNK
  12. TAXOTERE [Concomitant]
     Indication: PROSTATE CANCER METASTATIC
     Dosage: UNK
     Dates: end: 20060701
  13. TAXOL + CARBOPLATIN [Concomitant]
     Indication: PROSTATE CANCER METASTATIC

REACTIONS (18)
  - ANXIETY [None]
  - ATELECTASIS [None]
  - BONE DISORDER [None]
  - BONE PAIN [None]
  - HEPATIC LESION [None]
  - IMPAIRED HEALING [None]
  - INJURY [None]
  - MALIGNANT NEOPLASM PROGRESSION [None]
  - METASTASES TO BONE [None]
  - METASTASES TO LUNG [None]
  - OSTEOMYELITIS [None]
  - OSTEONECROSIS [None]
  - PAIN [None]
  - PROSTATIC SPECIFIC ANTIGEN INCREASED [None]
  - TOOTH DISORDER [None]
  - TOOTH EXTRACTION [None]
  - TOOTH LOSS [None]
  - WEIGHT DECREASED [None]
